FAERS Safety Report 5765919-8 (Version None)
Quarter: 2008Q2

REPORT INFORMATION
  Report Type: 
  Country: None (occurrence: None)
  Receive Date: 20080611
  Receipt Date: 20070702
  Transmission Date: 20081010
  Serious: No
  Sender: FDA-Public Use
  Company Number: US-BRISTOL-MYERS SQUIBB COMPANY-13834163

PATIENT
  Age: 71 Year
  Sex: Male

DRUGS (1)
  1. SINEMET [Suspect]
     Indication: PARKINSONISM
     Dosage: STARTED DOSAGE AFTER 27-JUN-2007.
     Route: 048
     Dates: start: 20070601

REACTIONS (1)
  - SOMNOLENCE [None]
